FAERS Safety Report 8536850-X (Version None)
Quarter: 2012Q3

REPORT INFORMATION
  Report Type: 
  Country: None (occurrence: None)
  Receive Date: 20120725
  Receipt Date: 20120712
  Transmission Date: 20120928
  Serious: Yes (Other)
  Sender: FDA-Public Use
  Company Number: US-ASTRAZENECA-2012SE48101

PATIENT
  Sex: Female

DRUGS (3)
  1. SEROQUEL XR [Suspect]
     Route: 048
  2. SEROQUEL XR [Suspect]
     Route: 048
  3. SEROQUEL XR [Suspect]
     Route: 048

REACTIONS (5)
  - HALLUCINATIONS, MIXED [None]
  - DRUG DOSE OMISSION [None]
  - VOMITING [None]
  - BIPOLAR I DISORDER [None]
  - SUICIDAL BEHAVIOUR [None]
